FAERS Safety Report 8793836 (Version 1)
Quarter: 2012Q4

REPORT INFORMATION
  Report Type: 
  Country: CZ (occurrence: CZ)
  Receive Date: 20120917
  Receipt Date: 20120917
  Transmission Date: 20130627
  Serious: Yes (Disabling, Other)
  Sender: FDA-Public Use
  Company Number: CZ-BAYER-2012-093588

PATIENT
  Sex: Male

DRUGS (2)
  1. NEXAVAR [Suspect]
     Indication: RENAL CANCER METASTATIC
     Dosage: 400 mg, BID
     Route: 048
     Dates: end: 20120509
  2. NEXAVAR [Suspect]
     Indication: RENAL CANCER METASTATIC
     Dosage: 400 mg, QD
     Route: 048
     Dates: start: 20120509, end: 201209

REACTIONS (4)
  - General physical health deterioration [Unknown]
  - Hypoglycaemia [Recovered/Resolved with Sequelae]
  - Dyspnoea [Unknown]
  - Fatigue [Unknown]
